FAERS Safety Report 9806527 (Version 2)
Quarter: 2014Q1

REPORT INFORMATION
  Report Type: Spontaneous
  Country: US (occurrence: US)
  Receive Date: 20140109
  Receipt Date: 20140306
  Transmission Date: 20141002
  Serious: Yes (Other)
  Sender: FDA-Public Use
  Company Number: US-PFIZER INC-2014006868

PATIENT
  Sex: Female

DRUGS (2)
  1. LIPITOR [Suspect]
     Dosage: UNK
  2. PREMARIN [Suspect]
     Dosage: UNK

REACTIONS (3)
  - Diabetes mellitus [Unknown]
  - Depressed mood [Unknown]
  - Confusional state [Unknown]
